FAERS Safety Report 10163734 (Version 1)
Quarter: 2014Q2

REPORT INFORMATION
  Report Type: Spontaneous
  Country: CH (occurrence: CH)
  Receive Date: 20140509
  Receipt Date: 20140509
  Transmission Date: 20141212
  Serious: Yes (Hospitalization, Other)
  Sender: FDA-Public Use
  Company Number: CH-MERCK-1405CHE004374

PATIENT
  Sex: Male

DRUGS (4)
  1. JANUVIA [Suspect]
     Dosage: 100 MG, QD
     Route: 048
  2. JANUVIA [Suspect]
     Dosage: 50 MG, QD
     Route: 048
  3. MARCOUMAR [Concomitant]
  4. FUROSEMIDE [Concomitant]
     Route: 048

REACTIONS (1)
  - Hepatic failure [Unknown]
